FAERS Safety Report 8963135 (Version 2)
Quarter: 2013Q1

REPORT INFORMATION
  Report Type: Report from Study
  Country: KR (occurrence: KR)
  Receive Date: 20121213
  Receipt Date: 20130313
  Transmission Date: 20140127
  Serious: Yes (Hospitalization)
  Sender: FDA-Public Use
  Company Number: KR-ABBOTT-12P-090-1017763-00

PATIENT
  Age: 40 Year
  Sex: Male

DRUGS (4)
  1. KALETRA [Suspect]
     Indication: HIV INFECTION
     Route: 048
     Dates: start: 20110524, end: 20110615
  2. ABC [Concomitant]
     Indication: HIV INFECTION
     Dates: start: 20110530
  3. 3TC [Concomitant]
     Indication: HIV INFECTION
     Dates: start: 20110530
  4. 3TC/AZT [Concomitant]
     Indication: HIV INFECTION
     Dates: start: 20110524, end: 20110529

REACTIONS (12)
  - Atypical mycobacterial infection [Recovered/Resolved]
  - Acquired immunodeficiency syndrome [Unknown]
  - Immune system disorder [Unknown]
  - Alanine aminotransferase increased [Unknown]
  - Aspartate aminotransferase increased [Unknown]
  - White blood cell count decreased [Unknown]
  - Platelet count decreased [Unknown]
  - Haemoglobin decreased [Unknown]
  - Aspartate aminotransferase increased [Unknown]
  - White blood cell count decreased [Unknown]
  - Platelet count decreased [Unknown]
  - Haemoglobin decreased [Unknown]
